FAERS Safety Report 9677123 (Version 1)
Quarter: 2013Q4

REPORT INFORMATION
  Report Type: Report from Study
  Country: GB (occurrence: GB)
  Receive Date: 20131108
  Receipt Date: 20131108
  Transmission Date: 20140711
  Serious: Yes (Hospitalization)
  Sender: FDA-Public Use
  Company Number: GB-AMGEN-GBRCT2013078902

PATIENT
  Age: 69 Year
  Sex: Male
  Weight: 55.96 kg

DRUGS (1)
  1. ETANERCEPT [Suspect]
     Indication: PRODUCT USED FOR UNKNOWN INDICATION
     Dosage: 50 MG, QWK
     Route: 065
     Dates: start: 20130704

REACTIONS (2)
  - Pancreatitis [Recovered/Resolved]
  - Oesophageal candidiasis [Recovered/Resolved]
